FAERS Safety Report 5179738-7 (Version None)
Quarter: 2006Q4

REPORT INFORMATION
  Report Type: 
  Country: None (occurrence: None)
  Receive Date: 20061212
  Receipt Date: 20061129
  Transmission Date: 20070319
  Serious: Yes (Other)
  Sender: FDA-Public Use
  Company Number: 2006117928

PATIENT
  Age: 51 Year
  Sex: Female

DRUGS (1)
  1. LYRICA [Suspect]
     Indication: TRIGEMINAL NEURALGIA
     Dosage: ORAL
     Route: 048
     Dates: start: 20060101, end: 20060901

REACTIONS (16)
  - ABDOMINAL DISTENSION [None]
  - ANXIETY [None]
  - DRUG INEFFECTIVE [None]
  - FEAR [None]
  - HEART RATE INCREASED [None]
  - HYPERHIDROSIS [None]
  - HYPERTENSION [None]
  - MALAISE [None]
  - MOBILITY DECREASED [None]
  - MYALGIA [None]
  - OVERDOSE [None]
  - PANIC ATTACK [None]
  - RETCHING [None]
  - SOMNOLENCE [None]
  - SPEECH DISORDER [None]
  - WEIGHT INCREASED [None]
